FAERS Safety Report 4674628-8 (Version None)
Quarter: 2005Q2

REPORT INFORMATION
  Report Type: 
  Country: None (occurrence: None)
  Receive Date: 20050519
  Receipt Date: 20050314
  Transmission Date: 20051028
  Serious: Yes (Other)
  Sender: FDA-Public Use
  Company Number: 200510319BBE

PATIENT
  Age: 70 Year
  Sex: Male

DRUGS (1)
  1. GAMUNEX [Suspect]
     Indication: IMMUNE SYSTEM DISORDER
     Dosage: 60 G, QD, INTRAVENOUS
     Route: 042
     Dates: start: 20050224, end: 20050226

REACTIONS (1)
  - HAEMOLYTIC ANAEMIA [None]
